FAERS Safety Report 7401393-3 (Version None)
Quarter: 2011Q2

REPORT INFORMATION
  Report Type: 
  Country: None (occurrence: None)
  Receive Date: 20110407
  Receipt Date: 20110331
  Transmission Date: 20111010
  Serious: Yes (Hospitalization, Other)
  Sender: FDA-Public Use
  Company Number: SG-ABBOTT-11P-008-0705124-00

PATIENT

DRUGS (6)
  1. FOLIC ACID [Concomitant]
     Indication: VITAMIN SUPPLEMENTATION
     Dosage: OM
     Dates: start: 20090804
  2. EMITRICITABINE [Concomitant]
     Indication: HIV INFECTION
     Dosage: OM
     Dates: start: 20100701
  3. KALETRA [Suspect]
     Indication: HIV INFECTION
     Dosage: 1 BD
     Route: 048
     Dates: start: 20100701
  4. TENOFOVIR [Concomitant]
     Indication: HIV INFECTION
     Dosage: OM
     Dates: start: 20100701
  5. FLUCONOZOLE [Concomitant]
     Indication: CRYPTOCOCCOSIS
     Dates: start: 20031230
  6. DAPSONE [Concomitant]
     Indication: PROPHYLAXIS
     Dosage: 1 OM
     Dates: start: 20031230

REACTIONS (4)
  - HERPES ZOSTER [None]
  - RASH VESICULAR [None]
  - STAPHYLOCOCCAL INFECTION [None]
  - NECK MASS [None]
